FAERS Safety Report 6257433-0 (Version None)
Quarter: 2009Q3

REPORT INFORMATION
  Report Type: 
  Country: None (occurrence: None)
  Receive Date: 20090701
  Receipt Date: 20090701
  Transmission Date: 20100115
  Serious: Yes (Other)
  Sender: FDA-Public Use
  Company Number: None

PATIENT
  Age: 62 Year
  Sex: Male
  Weight: 117.9352 kg

DRUGS (1)
  1. ZICAM [Suspect]
     Indication: UPPER RESPIRATORY TRACT INFECTION
     Dosage: NASAL
     Route: 045
     Dates: start: 20090202, end: 20090204

REACTIONS (2)
  - DYSGEUSIA [None]
  - HYPOSMIA [None]
